FAERS Safety Report 6856388-5 (Version None)
Quarter: 2010Q3

REPORT INFORMATION
  Report Type: 
  Country: None (occurrence: None)
  Receive Date: 20100716
  Receipt Date: 20100716
  Transmission Date: 20110219
  Serious: No
  Sender: FDA-Public Use
  Company Number: None

PATIENT
  Age: 61 Year
  Sex: Male
  Weight: 68.0396 kg

DRUGS (1)
  1. FLAGYL [Suspect]
     Indication: GIARDIASIS
     Dosage: 500 MG 2X PO
     Route: 048
     Dates: start: 20100210, end: 20100217

REACTIONS (1)
  - NEUROPATHY PERIPHERAL [None]
